FAERS Safety Report 6388448-X (Version None)
Quarter: 2009Q4

REPORT INFORMATION
  Report Type: 
  Country: None (occurrence: None)
  Receive Date: 20091005
  Receipt Date: 20090928
  Transmission Date: 20100525
  Serious: Yes (Death, Other)
  Sender: FDA-Public Use
  Company Number: GB-ROCHE-659813

PATIENT
  Age: 66 Year
  Sex: Female

DRUGS (5)
  1. CAPECITABINE [Suspect]
     Indication: RECTAL CANCER
     Route: 048
  2. CAPECITABINE [Suspect]
     Route: 048
  3. IRINOTECAN HCL [Suspect]
     Indication: RECTAL CANCER
     Route: 042
  4. IRINOTECAN HCL [Suspect]
     Route: 042
  5. IRINOTECAN HCL [Suspect]
     Route: 042

REACTIONS (2)
  - FEMALE GENITAL TRACT FISTULA [None]
  - GENERAL PHYSICAL HEALTH DETERIORATION [None]
